FAERS Safety Report 9449156 (Version 4)
Quarter: 2014Q2

REPORT INFORMATION
  Report Type: Spontaneous
  Country: US (occurrence: None)
  Receive Date: 20130806
  Receipt Date: 20140603
  Transmission Date: 20141212
  Serious: Yes (Hospitalization, Congenital Anomaly)
  Sender: FDA-Public Use
  Company Number: SYM-2013-07462

PATIENT
  Age: 0 Day
  Sex: Male

DRUGS (5)
  1. WELLBUTRIN XL [Suspect]
     Indication: DEPRESSION
     Route: 064
     Dates: start: 20060829
  2. FLUOXETINE HYDROCHLORIDE (FLUOXETINE HYDROCHLORIDE) (FLUOXETINE HYDROCHLORIDE) [Concomitant]
  3. PERCOCET (TYLOX /00446701/) (PARACETAMOL, OXYCODONE HYDROCHLORIDE, OXYCODONE TEREPHTHALATE) [Concomitant]
  4. HYDROXYZINE (HYDROXYZINE) [Concomitant]
  5. LORAZEPAM (LORAZEPAM) [Concomitant]

REACTIONS (11)
  - Maternal drugs affecting foetus [None]
  - Exomphalos [None]
  - Persistent foetal circulation [None]
  - Hypospadias [None]
  - Caesarean section [None]
  - Apgar score low [None]
  - Heart disease congenital [None]
  - Double outlet right ventricle [None]
  - Foetal growth restriction [None]
  - Ventricular septal defect [None]
  - Pulmonary hypertension [None]
